FAERS Safety Report 9206584 (Version 1)
Quarter: 2013Q1

REPORT INFORMATION
  Report Type: Spontaneous
  Country: US (occurrence: None)
  Receive Date: 20120709
  Receipt Date: 20120709
  Transmission Date: 20140127
  Serious: Yes (Hospitalization)
  Sender: FDA-Public Use
  Company Number: PHHY2011US63036

PATIENT
  Age: 51 Year
  Sex: Female

DRUGS (1)
  1. GLEEVEC (IMATINIB) [Suspect]
     Indication: CHRONIC MYELOMONOCYTIC LEUKAEMIA
     Route: 048
     Dates: start: 20110620

REACTIONS (6)
  - Dehydration [None]
  - Nausea [None]
  - Swelling [None]
  - Fluid retention [None]
  - Oedema peripheral [None]
  - Vomiting [None]
